FAERS Safety Report 4838065-5 (Version None)
Quarter: 2005Q4

REPORT INFORMATION
  Report Type: 
  Country: None (occurrence: None)
  Receive Date: 20051128
  Receipt Date: 20040218
  Transmission Date: 20060501
  Serious: Yes (Death)
  Sender: FDA-Public Use
  Company Number: CH-ROCHE-359165

PATIENT
  Age: 61 Year
  Sex: Male
  Weight: 72.5 kg

DRUGS (13)
  1. TASMAR [Suspect]
     Indication: PARKINSON'S DISEASE
     Route: 048
     Dates: start: 20000805
  2. MADOPAR [Suspect]
     Indication: PARKINSON'S DISEASE
     Route: 048
  3. LORAZEPAM [Concomitant]
     Indication: SEDATION
  4. THIOPENTAL SODIUM [Concomitant]
     Indication: ANAESTHESIA
  5. PANCURONIUM [Concomitant]
     Indication: INTUBATION
  6. ISOFLURANE [Concomitant]
     Indication: ANAESTHESIA
  7. FENTANYL [Concomitant]
     Indication: ANAESTHESIA
  8. NOREPINEPHRINE [Concomitant]
     Indication: MEAN ARTERIAL PRESSURE
  9. ACETAMINOPHEN [Concomitant]
  10. ASPIRIN [Concomitant]
  11. HEPARIN SODIUM [Concomitant]
  12. PHENYLEPHRINE [Concomitant]
  13. EPINEPHRINE [Concomitant]
     Indication: MEAN ARTERIAL PRESSURE

REACTIONS (15)
  - ACUTE MYOCARDIAL INFARCTION [None]
  - BLOOD PRESSURE DECREASED [None]
  - CARDIAC FAILURE ACUTE [None]
  - HAEMOGLOBIN DECREASED [None]
  - HEPATIC ENZYME INCREASED [None]
  - HYPERHIDROSIS [None]
  - LIVER DISORDER [None]
  - LUNG DISORDER [None]
  - METABOLIC ACIDOSIS [None]
  - MULTI-ORGAN FAILURE [None]
  - NEUROLEPTIC MALIGNANT SYNDROME [None]
  - PALLOR [None]
  - PANCREATIC DISORDER [None]
  - RENAL IMPAIRMENT [None]
  - SMALL INTESTINE CARCINOMA [None]
